FAERS Safety Report 7160605-4 (Version None)
Quarter: 2010Q4

REPORT INFORMATION
  Report Type: 
  Country: None (occurrence: None)
  Receive Date: 20101214
  Receipt Date: 20091125
  Transmission Date: 20110411
  Serious: No
  Sender: FDA-Public Use
  Company Number: US-AMGEN-KDL377176

PATIENT

DRUGS (2)
  1. ENBREL [Suspect]
     Indication: RHEUMATOID ARTHRITIS
     Dosage: 25 MG, 2 TIMES/WK
     Route: 058
     Dates: start: 20010201
  2. METHOTREXATE [Concomitant]
     Dosage: 20 MG, QWK

REACTIONS (4)
  - BUNION [None]
  - CATARACT [None]
  - CHOLECYSTECTOMY [None]
  - LOCALISED INFECTION [None]
